FAERS Safety Report 25155984 (Version 1)
Quarter: 2025Q2

REPORT INFORMATION
  Report Type: Spontaneous
  Country: US (occurrence: US)
  Receive Date: 20250403
  Receipt Date: 20250403
  Transmission Date: 20250716
  Serious: No
  Sender: MYLAN
  Company Number: US-MYLANLABS-2025M1026203

PATIENT
  Age: 72 Year
  Sex: Female

DRUGS (12)
  1. AMLODIPINE [Interacting]
     Active Substance: AMLODIPINE BESYLATE
     Indication: Product used for unknown indication
  2. AMLODIPINE [Interacting]
     Active Substance: AMLODIPINE BESYLATE
     Route: 065
  3. AMLODIPINE [Interacting]
     Active Substance: AMLODIPINE BESYLATE
     Route: 065
  4. AMLODIPINE [Interacting]
     Active Substance: AMLODIPINE BESYLATE
  5. AUVELITY [Interacting]
     Active Substance: BUPROPION HYDROCHLORIDE\DEXTROMETHORPHAN HYDROBROMIDE
     Indication: Product used for unknown indication
  6. AUVELITY [Interacting]
     Active Substance: BUPROPION HYDROCHLORIDE\DEXTROMETHORPHAN HYDROBROMIDE
     Route: 065
  7. AUVELITY [Interacting]
     Active Substance: BUPROPION HYDROCHLORIDE\DEXTROMETHORPHAN HYDROBROMIDE
     Route: 065
  8. AUVELITY [Interacting]
     Active Substance: BUPROPION HYDROCHLORIDE\DEXTROMETHORPHAN HYDROBROMIDE
  9. ZYPREXA [Suspect]
     Active Substance: OLANZAPINE
     Indication: Product used for unknown indication
  10. ZYPREXA [Suspect]
     Active Substance: OLANZAPINE
     Route: 065
  11. ZYPREXA [Suspect]
     Active Substance: OLANZAPINE
     Route: 065
  12. ZYPREXA [Suspect]
     Active Substance: OLANZAPINE

REACTIONS (8)
  - Catatonia [Unknown]
  - Skin hypopigmentation [Unknown]
  - Movement disorder [Unknown]
  - Peripheral swelling [Unknown]
  - Blood pressure increased [Unknown]
  - Erythema [Unknown]
  - Somnolence [Unknown]
  - Drug interaction [Unknown]
